FAERS Safety Report 8897055 (Version 1)
Quarter: 2012Q4

REPORT INFORMATION
  Report Type: 
  Country: US (occurrence: US)
  Receive Date: 20121108
  Receipt Date: 20121108
  Transmission Date: 20130627
  Serious: No
  Sender: FDA-Public Use
  Company Number: US-AMGEN-USASP2012026950

PATIENT
  Sex: Male

DRUGS (10)
  1. ENBREL [Suspect]
     Indication: PSORIASIS
     Dosage: 50 mg, qwk
     Route: 058
  2. FLEXERIL                           /00428402/ [Concomitant]
     Dosage: 10 mg, UNK
  3. RELAFEN [Concomitant]
     Dosage: 500 mg, UNK
  4. NABUMETONE [Concomitant]
     Dosage: 500 mg, UNK
  5. LISINOPRIL [Concomitant]
     Dosage: 10 mg, UNK
  6. INDOMETHACIN                       /00003801/ [Concomitant]
     Dosage: 25 mg, UNK
  7. LOVAZA [Concomitant]
     Dosage: 1 g, UNK
  8. PRILOSEC                           /00661201/ [Concomitant]
     Dosage: 20 mg, UNK
  9. MULTI TABS [Concomitant]
  10. ZIAC [Concomitant]

REACTIONS (2)
  - Therapeutic response decreased [Unknown]
  - Psoriasis [Unknown]
